FAERS Safety Report 14457626 (Version 3)
Quarter: 2018Q1

REPORT INFORMATION
  Report Type: Spontaneous
  Country: US (occurrence: US)
  Receive Date: 20180130
  Receipt Date: 20180314
  Transmission Date: 20180509
  Serious: No
  Sender: FDA-Public Use
  Company Number: US-PFIZER INC-2018039070

PATIENT
  Age: 58 Year
  Sex: Male
  Weight: 90.72 kg

DRUGS (5)
  1. TRAMADOL. [Concomitant]
     Active Substance: TRAMADOL
     Indication: PAIN
     Dosage: 50 MG, 3X/DAY
     Route: 048
     Dates: start: 2017
  2. BACLOFEN. [Concomitant]
     Active Substance: BACLOFEN
     Indication: SEIZURE
     Dosage: 20 MG, 3X/DAY
     Route: 048
     Dates: start: 2013
  3. LYRICA [Suspect]
     Active Substance: PREGABALIN
     Indication: NEURALGIA
  4. LYRICA [Suspect]
     Active Substance: PREGABALIN
     Indication: CENTRAL NERVOUS SYSTEM LESION
     Dosage: 100 MG, 2X/DAY
     Route: 048
     Dates: start: 2018
  5. IBUPROFEN. [Concomitant]
     Active Substance: IBUPROFEN
     Indication: PAIN
     Dosage: 800 MG, 3X/DAY
     Route: 048
     Dates: start: 2012

REACTIONS (1)
  - No adverse event [Not Recovered/Not Resolved]

NARRATIVE: CASE EVENT DATE: 2018
